FAERS Safety Report 4462008-X (Version None)
Quarter: 2004Q3

REPORT INFORMATION
  Report Type: 
  Country: None (occurrence: None)
  Receive Date: 20040929
  Receipt Date: 20040921
  Transmission Date: 20050211
  Serious: Yes (Death)
  Sender: FDA-Public Use
  Company Number: BE-JNJFOC-20040907837

PATIENT
  Age: 19 Year
  Sex: Female

DRUGS (7)
  1. PROPULSID [Suspect]
     Route: 049
     Dates: start: 20040714
  2. PROGRAF [Concomitant]
     Indication: LUNG TRANSPLANT
     Route: 049
     Dates: start: 20040701
  3. MEDROL [Concomitant]
     Indication: LUNG TRANSPLANT
     Route: 049
     Dates: start: 20040701
  4. LOGASTRIC [Concomitant]
     Route: 042
     Dates: start: 20040701
  5. ANTIBIOTICS [Concomitant]
     Route: 042
     Dates: start: 20040701
  6. CANCIDAS [Concomitant]
     Route: 042
  7. CYMEVENE [Concomitant]
     Route: 042

REACTIONS (31)
  - ABDOMINAL PAIN [None]
  - ABSCESS [None]
  - ACUTE RESPIRATORY DISTRESS SYNDROME [None]
  - ASPERGILLOSIS [None]
  - ASTHENIA [None]
  - CARDIAC DISORDER [None]
  - CARDIAC FAILURE [None]
  - CHOLESTASIS [None]
  - CYTOLYTIC HEPATITIS [None]
  - DIABETES MELLITUS [None]
  - DIARRHOEA [None]
  - DYSPNOEA [None]
  - EMPYEMA [None]
  - GASTROOESOPHAGEAL REFLUX DISEASE [None]
  - HEPATITIS ACUTE [None]
  - HEPATITIS TOXIC [None]
  - HEPATOSPLENOMEGALY [None]
  - HYPOTENSION [None]
  - IMPAIRED GASTRIC EMPTYING [None]
  - LUNG INFILTRATION [None]
  - LUNG TRANSPLANT [None]
  - MULTI-ORGAN FAILURE [None]
  - NAUSEA [None]
  - NEPHROPATHY TOXIC [None]
  - PERICARDITIS [None]
  - PNEUMOTHORAX [None]
  - PURULENT PERICARDITIS [None]
  - RENAL FAILURE ACUTE [None]
  - RESPIRATORY FAILURE [None]
  - RESPIRATORY MONILIASIS [None]
  - SEPTIC SHOCK [None]
